FAERS Safety Report 25111944 (Version 2)
Quarter: 2025Q2

REPORT INFORMATION
  Report Type: Report from Study
  Country: US (occurrence: US)
  Receive Date: 20250324
  Receipt Date: 20250514
  Transmission Date: 20250716
  Serious: Yes (Hospitalization, Other)
  Sender: TAKEDA
  Company Number: US-TAKEDA-2025TUS028815

PATIENT
  Sex: Female

DRUGS (1)
  1. VEDOLIZUMAB [Suspect]
     Active Substance: VEDOLIZUMAB
     Indication: Product used for unknown indication

REACTIONS (8)
  - Crohn^s disease [Unknown]
  - Norovirus infection [Unknown]
  - Bacteraemia [Unknown]
  - Clostridium difficile infection [Unknown]
  - Influenza [Unknown]
  - Abscess [Unknown]
  - Fistula [Unknown]
  - Frequent bowel movements [Unknown]
